FAERS Safety Report 5715101-5 (Version None)
Quarter: 2008Q2

REPORT INFORMATION
  Report Type: 
  Country: None (occurrence: None)
  Receive Date: 20080423
  Receipt Date: 20080416
  Transmission Date: 20081010
  Serious: Yes (Congenital Anomaly)
  Sender: FDA-Public Use
  Company Number: GB-BOEHRINGER INGELHEIM GMBH, GERMANY-2008-BP-05069BP

PATIENT

DRUGS (5)
  1. VIRAMUNE [Suspect]
     Indication: HIV INFECTION
     Route: 015
  2. LAMIVUDINE + ZIDOVUDINE [Suspect]
     Indication: HIV INFECTION
     Route: 015
  3. LOPINAVIR AND RITONAVIR [Suspect]
     Indication: HIV INFECTION
     Route: 015
  4. EFAVIRENZ [Suspect]
     Indication: HIV INFECTION
     Route: 015
  5. KIVEXA [Suspect]
     Indication: HIV INFECTION
     Route: 015

REACTIONS (7)
  - CARDIAC DISORDER [None]
  - CARDIAC MALPOSITION [None]
  - CONGENITAL ANOMALY [None]
  - DIAPHRAGMATIC DISORDER [None]
  - DRUG EXPOSURE DURING PREGNANCY [None]
  - HEPATIC DISPLACEMENT [None]
  - PNEUMOTHORAX [None]
